FAERS Safety Report 4646301-3 (Version None)
Quarter: 2005Q2

REPORT INFORMATION
  Report Type: 
  Country: None (occurrence: None)
  Receive Date: 20050427
  Receipt Date: 20050420
  Transmission Date: 20051028
  Serious: Yes (Other)
  Sender: FDA-Public Use
  Company Number: NL-MERCK-0504NLD00025

PATIENT
  Sex: Male

DRUGS (1)
  1. VIOXX [Suspect]
     Indication: PAIN
     Route: 065
     Dates: start: 20020101, end: 20040901

REACTIONS (2)
  - ARRHYTHMIA [None]
  - HYPERTONIA [None]
